FAERS Safety Report 18886142 (Version 1)
Quarter: 2021Q1

REPORT INFORMATION
  Report Type: Spontaneous
  Country: US (occurrence: US)
  Receive Date: 20210211
  Receipt Date: 20210211
  Transmission Date: 20210420
  Serious: No
  Sender: FDA-Public Use
  Company Number: None

PATIENT
  Age: 76 Year
  Sex: Female
  Weight: 81.65 kg

DRUGS (1)
  1. DULOXETINE (DULOXETINE HCL 20MG CAP,EC) [Suspect]
     Active Substance: DULOXETINE HYDROCHLORIDE
     Indication: PAIN
     Route: 048
     Dates: start: 20201029, end: 20201202

REACTIONS (3)
  - Fall [None]
  - Upper limb fracture [None]
  - Dizziness [None]

NARRATIVE: CASE EVENT DATE: 20201221
